FAERS Safety Report 24981536 (Version 2)
Quarter: 2025Q2

REPORT INFORMATION
  Report Type: Spontaneous
  Country: FR (occurrence: FR)
  Receive Date: 20250218
  Receipt Date: 20250507
  Transmission Date: 20250717
  Serious: Yes (Hospitalization)
  Sender: CHEPLAPHARM
  Company Number: None

PATIENT
  Age: 58 Year
  Sex: Male
  Weight: 61 kg

DRUGS (6)
  1. OLANZAPINE [Suspect]
     Active Substance: OLANZAPINE
     Indication: Psychotic disorder
     Dosage: OLANZAPINE CNS 10 MG, 1.5 TABLETS IN THE MORNING, 1.5 TABLETS IN THE EVENING; ORAL ROUTE
     Route: 048
     Dates: end: 20250129
  2. ALPRAZOLAM [Suspect]
     Active Substance: ALPRAZOLAM
     Indication: Anxiety
     Dosage: 0.25 MG; 2 TABLETS MORNING, 2 TABLETS MIDDAY AND 1 TABLET IN THE EVENING; ORAL ROUTE
     Route: 048
  3. ARTANE [Suspect]
     Active Substance: TRIHEXYPHENIDYL HYDROCHLORIDE
     Indication: Psychotic disorder
     Dosage: 5 MG; 1 TABLET MORNING AND 1 TABLET EVENING; ORAL ROUTE ?DAILY DOSE: 10 MILLIGRAM
     Route: 048
     Dates: start: 20250129, end: 20250129
  4. VERAPAMIL HYDROCHLORIDE [Suspect]
     Active Substance: VERAPAMIL HYDROCHLORIDE
     Indication: Hypertension
     Dosage: VERAPAMIL LP CNS 120 MG: 1 TABLET IN THE MORNING; ORAL ROUTE ?DAILY DOSE: 120 MILLIGRAM
     Route: 048
  5. HALOPERIDOL DECANOATE [Suspect]
     Active Substance: HALOPERIDOL DECANOATE
     Indication: Psychotic disorder
     Dosage: SOLUTION INJECTABLE
     Route: 030
     Dates: start: 20250129, end: 20250129
  6. OXAZEPAM [Concomitant]
     Active Substance: OXAZEPAM
     Indication: Anxiety
     Route: 048

REACTIONS (5)
  - Gastrointestinal obstruction [Recovered/Resolved]
  - Peritonitis [Unknown]
  - Septic shock [Unknown]
  - Intestinal obstruction [Unknown]
  - Dyspnoea [Unknown]

NARRATIVE: CASE EVENT DATE: 20250129
